FAERS Safety Report 7659931-1 (Version None)
Quarter: 2011Q3

REPORT INFORMATION
  Report Type: 
  Country: None (occurrence: None)
  Receive Date: 20110805
  Receipt Date: 20110727
  Transmission Date: 20111222
  Serious: Yes (Other)
  Sender: FDA-Public Use
  Company Number: ES-GENZYME-THYM-1002655

PATIENT
  Age: 30 Year
  Sex: Male

DRUGS (14)
  1. ANTIBIOTICS [Concomitant]
     Indication: INFECTION PROPHYLAXIS
  2. COTRIM [Concomitant]
     Indication: ANTIFUNGAL PROPHYLAXIS
  3. PREDNISONE [Concomitant]
     Indication: IMMUNOSUPPRESSION
     Dosage: 10 MG, QD
     Route: 048
  4. PREDNISONE [Concomitant]
     Indication: PROPHYLAXIS AGAINST TRANSPLANT REJECTION
     Dosage: 1 G, UNK
     Route: 042
  5. THYMOGLOBULIN [Suspect]
     Dosage: 1.5 MG/KG, UNK
     Route: 042
  6. PREDNISONE [Concomitant]
     Indication: TRANSPLANT REJECTION
     Dosage: 1 MG/KG, UNK
  7. TACROLIMUS [Concomitant]
     Indication: IMMUNOSUPPRESSION
  8. MYCOPHENOLATE MOFETIL [Concomitant]
     Indication: IMMUNOSUPPRESSION
     Dosage: 2 G, QD
     Route: 048
  9. ANTIFUNGALS [Concomitant]
     Indication: ANTIFUNGAL PROPHYLAXIS
  10. VALGANCICLOVIR [Concomitant]
     Indication: ANTIVIRAL PROPHYLAXIS
     Dosage: UNK
  11. RED BLOOD CELLS [Concomitant]
     Indication: PRODUCT USED FOR UNKNOWN INDICATION
     Dosage: 20 U, UNK
  12. THYMOGLOBULIN [Suspect]
     Indication: TRANSPLANT REJECTION
     Dosage: UNK
  13. THYMOGLOBULIN [Suspect]
     Indication: PROPHYLAXIS AGAINST TRANSPLANT REJECTION
     Dosage: 2 MG/KG, ONCE
     Route: 042
     Dates: start: 20100327, end: 20100327
  14. SIROLIMUS [Concomitant]
     Indication: IMMUNOSUPPRESSION

REACTIONS (4)
  - SIALOCELE [None]
  - TRANSPLANT REJECTION [None]
  - JUGULAR VEIN THROMBOSIS [None]
  - FISTULA [None]
